FAERS Safety Report 5450341-4 (Version None)
Quarter: 2007Q3

REPORT INFORMATION
  Report Type: 
  Country: None (occurrence: None)
  Receive Date: 20070912
  Receipt Date: 20070904
  Transmission Date: 20080115
  Serious: Yes (Hospitalization)
  Sender: FDA-Public Use
  Company Number: AU-PFIZER INC-2007074288

PATIENT
  Age: 55 Year
  Sex: Female

DRUGS (1)
  1. CADUET [Suspect]
     Indication: BLOOD PRESSURE

REACTIONS (5)
  - DIZZINESS [None]
  - HEPATIC ENZYME INCREASED [None]
  - HYPERSENSITIVITY [None]
  - HYPOAESTHESIA [None]
  - SWELLING FACE [None]
